FAERS Safety Report 8360157-7 (Version None)
Quarter: 2012Q2

REPORT INFORMATION
  Report Type: 
  Country: None (occurrence: None)
  Receive Date: 20120515
  Receipt Date: 20120507
  Transmission Date: 20120825
  Serious: Yes (Other)
  Sender: FDA-Public Use
  Company Number: US-UCBSA-057010

PATIENT
  Age: 65 Year
  Sex: Male
  Weight: 99.79 kg

DRUGS (5)
  1. REVATIO [Suspect]
     Indication: LUNG DISORDER
     Route: 048
     Dates: end: 20120411
  2. REVATIO [Suspect]
     Indication: PULMONARY EMBOLISM
     Route: 048
     Dates: end: 20120411
  3. ALLOPURINOL [Concomitant]
     Indication: GOUT
     Dosage: UNKNOWN DOSE
  4. ZAROXOLYN [Suspect]
     Indication: HYPERTENSION
     Route: 048
     Dates: end: 20120330
  5. TRACLEER [Concomitant]
     Dosage: UNKNOWN DOSE

REACTIONS (9)
  - HEART RATE DECREASED [None]
  - MYOCARDIAL INFARCTION [None]
  - GAIT DISTURBANCE [None]
  - MICTURITION DISORDER [None]
  - ASTHENIA [None]
  - BLOOD PRESSURE ABNORMAL [None]
  - DYSURIA [None]
  - DYSPNOEA [None]
  - BODY HEIGHT ABNORMAL [None]
